FAERS Safety Report 7279588-1 (Version None)
Quarter: 2011Q1

REPORT INFORMATION
  Report Type: 
  Country: None (occurrence: None)
  Receive Date: 20110203
  Receipt Date: 20110203
  Transmission Date: 20110831
  Serious: Yes (Hospitalization)
  Sender: FDA-Public Use
  Company Number: None

PATIENT
  Sex: Female
  Weight: 54.4316 kg

DRUGS (1)
  1. PROPOXYPHENE NAPSYLATE AND ACETAMINOPHEN [Suspect]
     Indication: ARTHRALGIA
     Dosage: 1 TABLET EVERY 6 TO 8 HRS FOR YEARS

REACTIONS (2)
  - DIZZINESS [None]
  - WALKING AID USER [None]
